FAERS Safety Report 8588404-7 (Version None)
Quarter: 2012Q3

REPORT INFORMATION
  Report Type: 
  Country: None (occurrence: None)
  Receive Date: 20120813
  Receipt Date: 20120801
  Transmission Date: 20120928
  Serious: Yes (Hospitalization)
  Sender: FDA-Public Use
  Company Number: JP-JNJFOC-20120802915

PATIENT
  Age: 15 Year
  Sex: Male

DRUGS (6)
  1. REMICADE [Suspect]
     Indication: CROHN'S DISEASE
     Route: 042
     Dates: start: 20120726
  2. ELENTAL [Concomitant]
     Route: 048
  3. SOLU-MEDROL [Concomitant]
     Indication: PREMEDICATION
     Route: 065
     Dates: start: 20120726, end: 20120726
  4. ATARAX [Concomitant]
     Indication: PREMEDICATION
     Route: 065
     Dates: start: 20120726, end: 20120726
  5. CEFAZOLIN SODIUM [Concomitant]
     Route: 048
  6. PENTASA [Concomitant]
     Route: 048

REACTIONS (2)
  - CONVULSION [None]
  - INFUSION RELATED REACTION [None]
